FAERS Safety Report 10504778 (Version 2)
Quarter: 2015Q2

REPORT INFORMATION
  Report Type: Report from Study
  Country: GB (occurrence: GB)
  Receive Date: 20141008
  Receipt Date: 20150525
  Transmission Date: 20150821
  Serious: Yes (Hospitalization)
  Sender: FDA-Public Use
  Company Number: GB-009507513-1410GBR002741

PATIENT
  Age: 65 Year
  Sex: Male
  Weight: 94 kg

DRUGS (10)
  1. FUROSEMIDE. [Suspect]
     Active Substance: FUROSEMIDE
     Indication: GASTRIC CANCER
     Dosage: DATE OF LAST DOSE: 06/MAR/2012
     Route: 048
     Dates: start: 20120124
  2. ONDANSETRON [Suspect]
     Active Substance: ONDANSETRON
     Indication: GASTRIC CANCER
     Dosage: DATE OF LAST DOSE: 09/MAR/2012
     Route: 048
     Dates: start: 20120124
  3. LISINOPRIL. [Concomitant]
     Active Substance: LISINOPRIL
     Dosage: 5 MG, UNK
     Route: 065
     Dates: start: 200705
  4. EMEND [Suspect]
     Active Substance: APREPITANT
     Indication: GASTRIC CANCER
     Dosage: DATE OF LAST DOSE: 06/MAR/2012
     Route: 048
     Dates: start: 20120124
  5. XELODA [Suspect]
     Active Substance: CAPECITABINE
     Indication: GASTRIC CANCER
     Dosage: DATE OF MOST RECENT ADMINISTRATION: 27/MAR/2012
     Route: 048
     Dates: start: 20120124
  6. EPIRUBICIN HYDROCHLORIDE. [Suspect]
     Active Substance: EPIRUBICIN HYDROCHLORIDE
     Indication: GASTRIC CANCER
     Dosage: DATE OF MOST RECENT ADMINISTRATION: 06/MAR/2012
     Route: 042
     Dates: start: 20120124
  7. SIMVASTATIN. [Concomitant]
     Active Substance: SIMVASTATIN
     Dosage: 80 MG, UNK
     Route: 048
     Dates: start: 200503
  8. AVASTIN [Suspect]
     Active Substance: BEVACIZUMAB
     Indication: GASTRIC CANCER
     Dosage: DATE OF MOST RECENT ADMINISTRATION: 06/MAR/2012
     Route: 042
     Dates: start: 20120124
  9. DEXAMETHASONE. [Suspect]
     Active Substance: DEXAMETHASONE
     Indication: GASTRIC CANCER
     Dosage: DATE OF LAST DOSE: 09/MAR/2012
     Route: 048
     Dates: start: 20120124, end: 20120309
  10. CISPLATIN. [Suspect]
     Active Substance: CISPLATIN
     Indication: GASTRIC CANCER
     Dosage: DATE OF MOST RECENT ADMINISTRATION: 06/MAR/2012
     Route: 042
     Dates: start: 20120124

REACTIONS (4)
  - Diarrhoea [Recovered/Resolved]
  - Vomiting [Recovered/Resolved]
  - Abdominal sepsis [Recovered/Resolved]
  - Febrile neutropenia [Recovered/Resolved]

NARRATIVE: CASE EVENT DATE: 20120313
